FAERS Safety Report 22232298 (Version 1)
Quarter: 2023Q2

REPORT INFORMATION
  Report Type: Spontaneous
  Country: US (occurrence: None)
  Receive Date: 20230420
  Receipt Date: 20230420
  Transmission Date: 20230721
  Serious: No
  Sender: FDA-Public Use
  Company Number: US-ROCHE-3065254

PATIENT
  Sex: Female

DRUGS (1)
  1. ESBRIET [Suspect]
     Active Substance: PIRFENIDONE
     Indication: Interstitial lung disease
     Dosage: TAKE 1 TABLET THRICE A DAY FOR SEVEN DAYS, THEN 2 TABLETS THRICE A DAY FOR SEVEN DAYS
     Route: 048
     Dates: start: 202203

REACTIONS (2)
  - Cough [Unknown]
  - Insomnia [Unknown]
